FAERS Safety Report 8362196 (Version 2)
Quarter: 2014Q1

REPORT INFORMATION
  Report Type: Spontaneous
  Country: US (occurrence: US)
  Receive Date: 20120130
  Receipt Date: 20140226
  Transmission Date: 20141002
  Serious: Yes (Hospitalization)
  Sender: FDA-Public Use
  Company Number: US-GLAXOSMITHKLINE-A0871997A

PATIENT
  Age: 52 Year
  Sex: Male
  Weight: 82.7 kg

DRUGS (6)
  1. AVANDIA [Suspect]
     Indication: DIABETES MELLITUS
     Route: 048
     Dates: start: 2001, end: 2005
  2. INSULIN [Concomitant]
  3. METFORMIN [Concomitant]
  4. COZAAR [Concomitant]
  5. HCTZ [Concomitant]
  6. LESCOL [Concomitant]

REACTIONS (1)
  - Embolic stroke [Not Recovered/Not Resolved]
